FAERS Safety Report 6299569-4 (Version None)
Quarter: 2009Q3

REPORT INFORMATION
  Report Type: 
  Country: None (occurrence: None)
  Receive Date: 20090805
  Receipt Date: 20090805
  Transmission Date: 20100115
  Serious: Yes (Hospitalization, Disabling)
  Sender: FDA-Public Use
  Company Number: None

PATIENT
  Age: 44 Year
  Sex: Male
  Weight: 68.0396 kg

DRUGS (1)
  1. GEODON [Suspect]
     Dosage: NOT LISTED ONE PO
     Route: 048
     Dates: start: 20090614, end: 20090614

REACTIONS (1)
  - PRIAPISM [None]
